FAERS Safety Report 19236662 (Version 1)
Quarter: 2021Q2

REPORT INFORMATION
  Report Type: Spontaneous
  Country: US (occurrence: US)
  Receive Date: 20210507
  Receipt Date: 20210507
  Transmission Date: 20210717
  Serious: No
  Sender: FDA-Public Use
  Company Number: None

PATIENT
  Age: 47 Year
  Sex: Female
  Weight: 54 kg

DRUGS (3)
  1. SUPPLEMENTS [Concomitant]
     Active Substance: UNSPECIFIED INGREDIENT
  2. ACYCLOVIR. [Concomitant]
     Active Substance: ACYCLOVIR
  3. AIMOVIG [Suspect]
     Active Substance: ERENUMAB-AOOE
     Indication: MIGRAINE
     Dosage: ?          QUANTITY:1 INJECTION(S);OTHER FREQUENCY:ONLY USED ONCE;OTHER ROUTE:INJECTION?
     Dates: start: 20210411, end: 20210411

REACTIONS (1)
  - Constipation [None]

NARRATIVE: CASE EVENT DATE: 20210411
